FAERS Safety Report 25213289 (Version 2)
Quarter: 2025Q3

REPORT INFORMATION
  Report Type: Spontaneous
  Country: JP (occurrence: JP)
  Receive Date: 20250418
  Receipt Date: 20250802
  Transmission Date: 20251020
  Serious: Yes (Death)
  Sender: ALEXION PHARMACEUTICALS
  Company Number: JP-ASTRAZENECA-250036920_064320_P_1

PATIENT
  Sex: Male

DRUGS (2)
  1. ANDEXXA [Suspect]
     Active Substance: ANDEXANET ALFA
     Indication: Pericardial haemorrhage
     Dates: start: 20250410, end: 20250410
  2. EDOXABAN TOSYLATE [Concomitant]
     Active Substance: EDOXABAN TOSYLATE
     Route: 065

REACTIONS (1)
  - Death [Fatal]

NARRATIVE: CASE EVENT DATE: 20250413
